FAERS Safety Report 8378144-1 (Version None)
Quarter: 2012Q2

REPORT INFORMATION
  Report Type: 
  Country: None (occurrence: None)
  Receive Date: 20120522
  Receipt Date: 20120518
  Transmission Date: 20120825
  Serious: Yes (Hospitalization)
  Sender: FDA-Public Use
  Company Number: US-ROCHE-1070364

PATIENT
  Sex: Female

DRUGS (1)
  1. RANIBIZUMAB [Suspect]
     Indication: DIABETIC RETINAL OEDEMA
     Dosage: DOSE:2.0 MG/0.5 MG, LAST DOSE:20/SEP/2011
     Route: 050
     Dates: start: 20090226

REACTIONS (1)
  - URINARY TRACT INFECTION [None]
